FAERS Safety Report 21762502 (Version 11)
Quarter: 2024Q4

REPORT INFORMATION
  Report Type: Spontaneous
  Country: US (occurrence: US)
  Receive Date: 20221221
  Receipt Date: 20241121
  Transmission Date: 20250115
  Serious: Yes (Hospitalization, Other)
  Sender: PFIZER
  Company Number: US-PFIZER INC-202100966716

PATIENT
  Age: 67 Year
  Sex: Male
  Weight: 104.33 kg

DRUGS (4)
  1. TIKOSYN [Suspect]
     Active Substance: DOFETILIDE
     Indication: Heart rate
     Dosage: 250 MCG, TWICE A DAY
     Route: 048
     Dates: start: 2021
  2. TIKOSYN [Suspect]
     Active Substance: DOFETILIDE
     Indication: Atrial fibrillation
  3. TIKOSYN [Suspect]
     Active Substance: DOFETILIDE
     Indication: Cardiac failure congestive
  4. TIKOSYN [Suspect]
     Active Substance: DOFETILIDE
     Indication: Atrial fibrillation

REACTIONS (9)
  - Urosepsis [Unknown]
  - Pneumonia [Unknown]
  - Urinary tract obstruction [Unknown]
  - Wrong strength [Unknown]
  - Dysuria [Unknown]
  - Cough [Unknown]
  - Sputum discoloured [Unknown]
  - Head discomfort [Unknown]
  - Dyspnoea [Unknown]

NARRATIVE: CASE EVENT DATE: 20230801
